FAERS Safety Report 6760795-9 (Version None)
Quarter: 2010Q2

REPORT INFORMATION
  Report Type: 
  Country: None (occurrence: None)
  Receive Date: 20100608
  Receipt Date: 20100602
  Transmission Date: 20101027
  Serious: Yes (Other)
  Sender: FDA-Public Use
  Company Number: US-MERCK-1006USA00628

PATIENT
  Age: 62 Year
  Sex: Male

DRUGS (1)
  1. SINGULAIR [Suspect]
     Indication: ASTHMA
     Route: 048
     Dates: start: 20000101

REACTIONS (5)
  - DEPRESSION [None]
  - HEPATIC ENZYME INCREASED [None]
  - PRURITUS [None]
  - RASH [None]
  - SUICIDAL IDEATION [None]
